FAERS Safety Report 16399769 (Version 1)
Quarter: 2019Q2

REPORT INFORMATION
  Report Type: Spontaneous
  Country: US (occurrence: US)
  Receive Date: 20190606
  Receipt Date: 20190606
  Transmission Date: 20190711
  Serious: No
  Sender: FDA-Public Use
  Company Number: US-SA-2019SA152642

PATIENT
  Age: 25 Year
  Sex: Female

DRUGS (1)
  1. AUBAGIO [Suspect]
     Active Substance: TERIFLUNOMIDE
     Dosage: UNK, QD
     Route: 048
     Dates: start: 2018

REACTIONS (2)
  - Malaise [Unknown]
  - Candida infection [Unknown]

NARRATIVE: CASE EVENT DATE: 2018
